FAERS Safety Report 23858980 (Version 2)
Quarter: 2024Q2

REPORT INFORMATION
  Report Type: Spontaneous
  Country: SI (occurrence: SI)
  Receive Date: 20240515
  Receipt Date: 20240528
  Transmission Date: 20240715
  Serious: Yes (Death)
  Sender: FDA-Public Use
  Company Number: None

PATIENT
  Age: 87 Year
  Sex: Male

DRUGS (11)
  1. METHOTREXATE [Suspect]
     Active Substance: METHOTREXATE
     Indication: Psoriatic arthropathy
     Dosage: 20 MG DAILY
     Route: 048
     Dates: start: 20240326, end: 20240404
  2. COMBIGAN [Concomitant]
     Active Substance: BRIMONIDINE TARTRATE\TIMOLOL MALEATE
     Indication: Product used for unknown indication
     Dosage: 1 DROP, QOD (STRENGHT: 2 MG/ML + 5 MG/ML DOSE: 1 GTT 2X DAILY IN BOTH EYES); LONG-TERM THERAPY
     Route: 047
  3. Folacin [Concomitant]
     Indication: Prophylaxis
     Dosage: 5 MG, QW (1 TBL 1X WEEKLY); LONG-TERM THERAPY
     Route: 048
  4. KALCIJEV KARBONAT KRKA [Concomitant]
     Indication: Product used for unknown indication
     Dosage: 1 G, TIW (1 TBL 3X WEEKLY)
     Route: 048
  5. QUETIAPINE FUMARATE [Concomitant]
     Active Substance: QUETIAPINE FUMARATE
     Indication: Product used for unknown indication
     Dosage: 25 MG, QOD, 2X1
     Route: 048
  6. METAMIZOLE SODIUM [Concomitant]
     Active Substance: METAMIZOLE SODIUM
     Indication: Pain
     Dosage: STRENGHT: 500 MG/ML
     Route: 048
     Dates: start: 20240403, end: 20240405
  7. PANTOPRAZOLE SODIUM [Concomitant]
     Active Substance: PANTOPRAZOLE SODIUM
     Indication: Product used for unknown indication
     Dosage: 40 MG, QD, 1X1; LONG-TERM THERAPY
     Route: 048
  8. OSPEN 750 [Concomitant]
     Indication: Infection
     Dosage: 1 DF, TID (STRENGHT: 750 000 I.E./5 ML)
     Route: 048
     Dates: start: 20240402, end: 20240405
  9. Prostide [Concomitant]
     Indication: Benign prostatic hyperplasia
     Dosage: 5 MG, QD, 1X1
     Route: 048
  10. Rojazol [Concomitant]
     Indication: Oral disorder
     Dosage: STRENGHT:  20 MG/G
     Route: 049
     Dates: start: 20240402, end: 20240405
  11. Vitamin d3 krka [Concomitant]
     Indication: Product used for unknown indication
     Dosage: 1000 IU, QW (1 TBL 1X WEEKLY), STRENGTH- 1000 I.E.; LONG-TERM THERAPY
     Route: 048

REACTIONS (2)
  - Agranulocytosis [Fatal]
  - Febrile neutropenia [Fatal]

NARRATIVE: CASE EVENT DATE: 20240405
